FAERS Safety Report 21275416 (Version 1)
Quarter: 2022Q3

REPORT INFORMATION
  Report Type: Spontaneous
  Country: US (occurrence: None)
  Receive Date: 20220831
  Receipt Date: 20220831
  Transmission Date: 20221027
  Serious: Yes (Disabling)
  Sender: FDA-Public Use
  Company Number: None

PATIENT
  Age: 40 Year
  Sex: Female
  Weight: 72 kg

DRUGS (4)
  1. LUPRON DEPOT [Suspect]
     Active Substance: LEUPROLIDE ACETATE
     Indication: Endometriosis
     Dosage: OTHER QUANTITY : 1 INJECTION(S);?OTHER FREQUENCY : 3 MONTHS;?
     Route: 058
     Dates: start: 20220615
  2. NORETHINDRONE ACETATE 5 MG ORAL TAB [Concomitant]
  3. ESTRADIOL [Concomitant]
     Active Substance: ESTRADIOL
  4. CLARITIN [Concomitant]
     Active Substance: LORATADINE

REACTIONS (4)
  - Nausea [None]
  - Blood glucose increased [None]
  - Dizziness [None]
  - Impaired driving ability [None]

NARRATIVE: CASE EVENT DATE: 20220819
